FAERS Safety Report 9626948 (Version 3)
Quarter: 2013Q4

REPORT INFORMATION
  Report Type: Spontaneous
  Country: US (occurrence: US)
  Receive Date: 20131016
  Receipt Date: 20131216
  Transmission Date: 20140711
  Serious: Yes (Death)
  Sender: FDA-Public Use
  Company Number: US-BRACCO-010078

PATIENT
  Sex: Female

DRUGS (2)
  1. ISOVUE-M [Suspect]
     Indication: SPINAL MYELOGRAM
     Dosage: ADMINISTERED EITHER 9ML OR 12 ML
     Route: 037
     Dates: start: 20110929, end: 20110929
  2. ISOVUE-M [Suspect]
     Indication: COMPUTERISED TOMOGRAM
     Dosage: ADMINISTERED EITHER 9ML OR 12 ML
     Route: 037
     Dates: start: 20110929, end: 20110929

REACTIONS (1)
  - Meningitis [Fatal]
